FAERS Safety Report 6194231-0 (Version None)
Quarter: 2009Q2

REPORT INFORMATION
  Report Type: 
  Country: None (occurrence: None)
  Receive Date: 20090515
  Receipt Date: 20090515
  Transmission Date: 20091009
  Serious: No
  Sender: FDA-Public Use
  Company Number: None

PATIENT
  Sex: Female
  Weight: 62.15 kg

DRUGS (1)
  1. SYNTHROID [Suspect]
     Dosage: 50MG TABS QD PO
     Route: 048

REACTIONS (4)
  - DYSPHAGIA [None]
  - LABORATORY TEST ABNORMAL [None]
  - PRODUCT FORMULATION ISSUE [None]
  - PRODUCT SUBSTITUTION ISSUE [None]
